FAERS Safety Report 10841391 (Version 2)
Quarter: 2015Q1

REPORT INFORMATION
  Report Type: Spontaneous
  Country: DE (occurrence: DE)
  Receive Date: 20150220
  Receipt Date: 20150325
  Transmission Date: 20150721
  Serious: Yes (Life-Threatening, Hospitalization, Other)
  Sender: FDA-Public Use
  Company Number: DE-BEH-2015048818

PATIENT
  Age: 72 Year
  Sex: Male
  Weight: 91 kg

DRUGS (3)
  1. PRIVIGEN [Suspect]
     Active Substance: HUMAN IMMUNOGLOBULIN G
     Indication: POLYNEUROPATHY
     Dosage: START DATE: OCT-2013, STOP DATE: OCT 2014, TOTAL OF 5 CYCLES WITH 135G (4X30G+1X15G) /CYCLE
     Route: 042
  2. PREDNISOLON [Suspect]
     Active Substance: PREDNISOLONE
     Indication: ARTHRITIS
     Dosage: START DATE: CA. 2007, STOP DATE: ONGOING
     Route: 048
  3. LEFLUNOMID [Suspect]
     Active Substance: LEFLUNOMIDE
     Indication: ARTHRITIS
     Dosage: START DATE: CA 2007, STOP DATE: ONGOING
     Route: 048

REACTIONS (3)
  - Escherichia infection [Unknown]
  - Urosepsis [Unknown]
  - Escherichia pyelonephritis [Unknown]

NARRATIVE: CASE EVENT DATE: 20140806
